FAERS Safety Report 7323959-1 (Version None)
Quarter: 2011Q1

REPORT INFORMATION
  Report Type: 
  Country: None (occurrence: None)
  Receive Date: 20110301
  Receipt Date: 20110221
  Transmission Date: 20110831
  Serious: Yes (Hospitalization)
  Sender: FDA-Public Use
  Company Number: B0702238A

PATIENT
  Sex: Male

DRUGS (2)
  1. ACETYLCARNITINE [Concomitant]
     Dates: start: 20110119, end: 20110122
  2. NEODUPLAMOX [Suspect]
     Route: 065
     Dates: start: 20110121, end: 20110122

REACTIONS (4)
  - PAIN IN JAW [None]
  - PYREXIA [None]
  - RASH GENERALISED [None]
  - OROPHARYNGEAL PAIN [None]
